FAERS Safety Report 4431150-1 (Version None)
Quarter: 2004Q3

REPORT INFORMATION
  Report Type: 
  Country: None (occurrence: None)
  Receive Date: 20040824
  Receipt Date: 20040812
  Transmission Date: 20050211
  Serious: Yes (Death)
  Sender: FDA-Public Use
  Company Number: FR-JNJFOC-20040804085

PATIENT
  Age: 11 Year
  Sex: Female

DRUGS (1)
  1. PROPULSID [Suspect]
     Route: 049
     Dates: start: 20030126

REACTIONS (1)
  - CYSTIC FIBROSIS PANCREATIC [None]
